FAERS Safety Report 5056067-3 (Version None)
Quarter: 2006Q2

REPORT INFORMATION
  Report Type: 
  Country: None (occurrence: None)
  Receive Date: 20060616
  Receipt Date: 20060410
  Transmission Date: 20061013
  Serious: No
  Sender: FDA-Public Use
  Company Number: 2006US000316

PATIENT
  Age: 83 Year
  Sex: Female
  Weight: 69.8 kg

DRUGS (9)
  1. VESICARE [Suspect]
     Indication: INCONTINENCE
     Dosage: 5 MG, UID/QD, ORAL
     Route: 048
     Dates: start: 20060118, end: 20060210
  2. SYNTHROID [Concomitant]
  3. ALDACTAZIDE [Concomitant]
  4. PRILOSEC [Concomitant]
  5. AMARYL [Concomitant]
  6. ASCORBIC ACID [Concomitant]
  7. VITAMIN E [Concomitant]
  8. NORVASC [Concomitant]
  9. ALTACE [Concomitant]

REACTIONS (3)
  - ATRIAL FIBRILLATION [None]
  - NAUSEA [None]
  - SCIATICA [None]
